FAERS Safety Report 6678164-9 (Version None)
Quarter: 2010Q2

REPORT INFORMATION
  Report Type: 
  Country: None (occurrence: None)
  Receive Date: 20100409
  Receipt Date: 20100409
  Transmission Date: 20101027
  Serious: No
  Sender: FDA-Public Use
  Company Number: None

PATIENT
  Age: 32 Year
  Sex: Male
  Weight: 92.9874 kg

DRUGS (1)
  1. CHANTIX [Suspect]

REACTIONS (5)
  - ANGER [None]
  - FATIGUE [None]
  - HEADACHE [None]
  - PHOTOSENSITIVITY REACTION [None]
  - VISION BLURRED [None]
